FAERS Safety Report 4786816-0 (Version None)
Quarter: 2005Q4

REPORT INFORMATION
  Report Type: 
  Country: None (occurrence: None)
  Receive Date: 20051004
  Receipt Date: 20050922
  Transmission Date: 20060501
  Serious: Yes (Other)
  Sender: FDA-Public Use
  Company Number: 2005UW14299

PATIENT
  Age: 73 Year
  Sex: Female

DRUGS (8)
  1. SEROQUEL [Suspect]
     Route: 048
  2. ASPIRIN [Concomitant]
  3. VALPROIC ACID [Concomitant]
  4. GLUCOPHAGE [Concomitant]
  5. IMOVANE [Concomitant]
  6. INSULIN [Concomitant]
  7. RISPERDAL [Concomitant]
  8. ZYPREXA [Concomitant]

REACTIONS (4)
  - DEMENTIA [None]
  - DIABETES MELLITUS [None]
  - EPILEPSY [None]
  - PARANOIA [None]
